FAERS Safety Report 14562798 (Version 1)
Quarter: 2018Q1

REPORT INFORMATION
  Report Type: Spontaneous
  Country: US (occurrence: US)
  Receive Date: 20180222
  Receipt Date: 20180222
  Transmission Date: 20180509
  Serious: Yes (Hospitalization)
  Sender: FDA-Public Use
  Company Number: US-JNJFOC-20180226921

PATIENT
  Age: 49 Year
  Sex: Female
  Weight: 112.93 kg

DRUGS (5)
  1. ADEMPAS [Suspect]
     Active Substance: RIOCIGUAT
     Indication: PULMONARY HYPERTENSION
     Route: 048
  2. REMODULIN [Concomitant]
     Active Substance: TREPROSTINIL
     Route: 065
  3. XARELTO [Suspect]
     Active Substance: RIVAROXABAN
     Indication: PRODUCT USED FOR UNKNOWN INDICATION
     Route: 048
  4. ADEMPAS [Suspect]
     Active Substance: RIOCIGUAT
     Indication: PULMONARY HYPERTENSION
     Route: 048
     Dates: start: 20151110
  5. OPSUMIT [Concomitant]
     Active Substance: MACITENTAN
     Route: 065

REACTIONS (4)
  - Bronchitis [Unknown]
  - Infusion site reaction [Unknown]
  - Device dislocation [Unknown]
  - Catheter site haemorrhage [Not Recovered/Not Resolved]

NARRATIVE: CASE EVENT DATE: 201801
